FAERS Safety Report 13277428 (Version 2)
Quarter: 2017Q2

REPORT INFORMATION
  Report Type: Spontaneous
  Country: US (occurrence: US)
  Receive Date: 20170228
  Receipt Date: 20170421
  Transmission Date: 20170830
  Serious: Yes (Other)
  Sender: FDA-Public Use
  Company Number: US-ASTRAZENECA-2017SE19266

PATIENT
  Age: 20834 Day
  Sex: Female

DRUGS (24)
  1. ACETAMINOPHEN. [Concomitant]
     Active Substance: ACETAMINOPHEN
     Dosage: 500.0MG UNKNOWN
     Route: 048
  2. CALCIUM CARBONATE. [Concomitant]
     Active Substance: CALCIUM CARBONATE
     Dosage: 600 MG(1500 MG)- 400 UNIT PER TABLET
     Route: 048
  3. AROMASIN [Concomitant]
     Active Substance: EXEMESTANE
     Dosage: 25.0MG UNKNOWN
     Route: 048
  4. THERAGRAN [Concomitant]
     Active Substance: VITAMINS
     Route: 048
  5. FISH OIL [Concomitant]
     Active Substance: FISH OIL
     Dosage: 300-1000 MG
     Route: 048
  6. ZYRTEC [Concomitant]
     Active Substance: CETIRIZINE HYDROCHLORIDE
     Dosage: 10.0MG UNKNOWN
     Route: 048
  7. XGEVA [Concomitant]
     Active Substance: DENOSUMAB
     Dates: start: 20130701
  8. FASLODEX [Suspect]
     Active Substance: FULVESTRANT
     Route: 030
     Dates: start: 20130426
  9. IBRANCE [Suspect]
     Active Substance: PALBOCICLIB
     Route: 048
     Dates: start: 20161023
  10. TAMOXIFEN [Suspect]
     Active Substance: TAMOXIFEN
     Route: 048
     Dates: start: 20130304, end: 20130412
  11. CHOLECALCIFEROL [Concomitant]
     Active Substance: CHOLECALCIFEROL
     Dosage: 400 UNIT
     Route: 048
  12. VENTOLIN HFA [Concomitant]
     Active Substance: ALBUTEROL SULFATE
     Dosage: 90.0UG UNKNOWN
  13. DELTASONE [Concomitant]
     Active Substance: PREDNISONE
     Dosage: 20.0MG UNKNOWN
     Route: 048
  14. FULVESTRANT [Suspect]
     Active Substance: FULVESTRANT
     Route: 030
     Dates: start: 20161023
  15. VITAMIN D3 [Concomitant]
     Active Substance: CHOLECALCIFEROL
  16. NORVASC [Concomitant]
     Active Substance: AMLODIPINE BESYLATE
     Dosage: 5.0MG UNKNOWN
     Route: 048
  17. SYMBICORT INHL [Concomitant]
  18. GUAIFENESIN. [Concomitant]
     Active Substance: GUAIFENESIN
  19. FASLODEX [Suspect]
     Active Substance: FULVESTRANT
     Dosage: COMBINATION WITH XGEVA
     Route: 030
     Dates: start: 20130701
  20. TAMOXIFEN [Suspect]
     Active Substance: TAMOXIFEN
     Route: 048
     Dates: start: 200501, end: 20070727
  21. INULIN [Concomitant]
     Active Substance: INULIN
  22. OMEGA 3 [Concomitant]
     Active Substance: OMEGA-3 FATTY ACIDS
     Dosage: 300-1000 MG
     Route: 048
  23. FEMARA [Concomitant]
     Active Substance: LETROZOLE
     Dates: start: 20070727, end: 201207
  24. XGEVA [Concomitant]
     Active Substance: DENOSUMAB
     Dates: start: 20140305

REACTIONS (6)
  - Blood pressure increased [Unknown]
  - Metastases to bone [Unknown]
  - Pulmonary embolism [Unknown]
  - Bronchiectasis [Unknown]
  - Renal cell carcinoma [Unknown]
  - Lymphoedema [Unknown]

NARRATIVE: CASE EVENT DATE: 20130225
